FAERS Safety Report 9293010 (Version 1)
Quarter: 2013Q2

REPORT INFORMATION
  Report Type: Spontaneous
  Country: US (occurrence: None)
  Receive Date: 20130515
  Receipt Date: 20130515
  Transmission Date: 20140414
  Serious: Yes (Hospitalization)
  Sender: FDA-Public Use
  Company Number: None

PATIENT
  Age: 74 Year
  Sex: Male
  Weight: 68 kg

DRUGS (11)
  1. PRADAXA [Suspect]
     Indication: ATRIAL FIBRILLATION
     Route: 048
  2. LIPITOR [Concomitant]
  3. LOSARTAN [Concomitant]
  4. METFORMIN [Concomitant]
  5. CYMBALTA [Concomitant]
  6. DIGOXIN [Concomitant]
  7. DILTIAZEM CD [Concomitant]
  8. ONGLYZA [Concomitant]
  9. GLIMERIDE [Concomitant]
  10. ASPIRIN [Concomitant]
  11. METOPROLOL [Concomitant]

REACTIONS (3)
  - Melaena [None]
  - Asthenia [None]
  - Rectal haemorrhage [None]
